FAERS Safety Report 10466415 (Version 1)
Quarter: 2014Q3

REPORT INFORMATION
  Report Type: Spontaneous
  Country: DE (occurrence: DE)
  Receive Date: 20140922
  Receipt Date: 20140922
  Transmission Date: 20150326
  Serious: Yes (Death, Hospitalization)
  Sender: FDA-Public Use
  Company Number: DE-JNJFOC-20140914426

PATIENT

DRUGS (8)
  1. PREDNISONE. [Suspect]
     Active Substance: PREDNISONE
     Indication: DIFFUSE LARGE B-CELL LYMPHOMA
     Dosage: FOR 7 DAYS(PREPHASE) + REGIMEN WISE 1-5 DAYS
     Route: 048
  2. DOXORUBICIN HYDROCHLORIDE. [Suspect]
     Active Substance: DOXORUBICIN HYDROCHLORIDE
     Indication: DIFFUSE LARGE B-CELL LYMPHOMA
     Dosage: EVERY 2 WEEKS FOR A TOTAL OF SIX CYCLES ON DAYS 1, 15, 29, 43, 57, AND 71.
     Route: 042
  3. FILGRASTIM [Concomitant]
     Active Substance: FILGRASTIM
     Indication: LEUKOPENIA
     Dosage: ON DAY 4 OF EACH CYCLE
     Route: 065
  4. VINCRISTINE [Suspect]
     Active Substance: VINCRISTINE
     Indication: DIFFUSE LARGE B-CELL LYMPHOMA
     Dosage: EVERY 2 WEEKS FOR A TOTAL OF SIX CYCLES ON DAYS 1, 15, 29, 43, 57, AND 71.
     Route: 042
  5. CYCLOPHOSPHAMIDE. [Suspect]
     Active Substance: CYCLOPHOSPHAMIDE
     Indication: DIFFUSE LARGE B-CELL LYMPHOMA
     Dosage: FOR 7 DAYS (PREPHASE)/ EVERY 2 WEEKS FOR A TOTAL OF SIX CYCLES ON DAYS 1, 15, 29, 43, 57, AND 71.
     Route: 042
  6. VINCRISTINE [Suspect]
     Active Substance: VINCRISTINE
     Indication: DIFFUSE LARGE B-CELL LYMPHOMA
     Dosage: ON DAY 1, EVERY 2 WEEKS FOR A TOTAL OF SIX CYCLES ON DAYS 1, 15, 29, 43, 57, AND 71.
     Route: 042
  7. RITUXIMAB [Suspect]
     Active Substance: RITUXIMAB
     Indication: DIFFUSE LARGE B-CELL LYMPHOMA
     Dosage: ON DAYS 0, 1, 4, 8, 15, 22, 29, 43, 57, 71, 85, AND 99
     Route: 065
  8. LENOGRASTIM [Concomitant]
     Active Substance: LENOGRASTIM
     Indication: LEUKOPENIA
     Dosage: ON DAY 4 OF EACH CYCLE
     Route: 065

REACTIONS (1)
  - Interstitial lung disease [Fatal]
